FAERS Safety Report 20523924 (Version 1)
Quarter: 2022Q1

REPORT INFORMATION
  Report Type: Spontaneous
  Country: GB (occurrence: GB)
  Receive Date: 20220228
  Receipt Date: 20220228
  Transmission Date: 20220424
  Serious: Yes (Other)
  Sender: FDA-Public Use
  Company Number: GB-MHRA-MED-202202141415527520-PM0CD

PATIENT
  Sex: Female

DRUGS (1)
  1. CLARITHROMYCIN [Suspect]
     Active Substance: CLARITHROMYCIN
     Indication: Upper respiratory tract infection
     Dosage: 1000 MILLIGRAM DAILY;
     Dates: start: 20220211, end: 20220213

REACTIONS (5)
  - Throat irritation [Recovering/Resolving]
  - Cough [Recovering/Resolving]
  - Hypoacusis [Not Recovered/Not Resolved]
  - Pruritus [Recovering/Resolving]
  - Hyperacusis [Not Recovered/Not Resolved]

NARRATIVE: CASE EVENT DATE: 20220211
